FAERS Safety Report 15526017 (Version 1)
Quarter: 2018Q4

REPORT INFORMATION
  Report Type: Spontaneous
  Country: FR (occurrence: FR)
  Receive Date: 20181018
  Receipt Date: 20181018
  Transmission Date: 20190205
  Serious: Yes (Life-Threatening, Hospitalization, Other)
  Sender: FDA-Public Use
  Company Number: FR-SA-2018SA287227

PATIENT
  Age: 68 Year
  Sex: Male
  Weight: 65 kg

DRUGS (11)
  1. DUTASTERIDE. [Concomitant]
     Active Substance: DUTASTERIDE
  2. METFORMIN [Concomitant]
     Active Substance: METFORMIN HYDROCHLORIDE
  3. AUBAGIO [Suspect]
     Active Substance: TERIFLUNOMIDE
     Indication: MULTIPLE SCLEROSIS
     Route: 048
     Dates: start: 201712, end: 201808
  4. RISPERIDONE. [Concomitant]
     Active Substance: RISPERIDONE
  5. PANTOPRAZOLE [Concomitant]
     Active Substance: PANTOPRAZOLE
  6. SIMVASTATINE [Concomitant]
     Active Substance: SIMVASTATIN
  7. SILODOSINE [Concomitant]
     Active Substance: SILODOSIN
  8. SITAGLIPTINE [Concomitant]
     Active Substance: SITAGLIPTIN
  9. DIOSMECTITE [Concomitant]
     Active Substance: MONTMORILLONITE
  10. LERCANIDIPINE [Concomitant]
     Active Substance: LERCANIDIPINE
  11. ZOPICLONE [Concomitant]
     Active Substance: ZOPICLONE

REACTIONS (1)
  - Brain abscess [Recovering/Resolving]

NARRATIVE: CASE EVENT DATE: 201808
